FAERS Safety Report 9648198 (Version 2)
Quarter: 2013Q4

REPORT INFORMATION
  Report Type: Report from Study
  Country: VE (occurrence: VE)
  Receive Date: 20131028
  Receipt Date: 20131028
  Transmission Date: 20140711
  Serious: Yes (Other)
  Sender: FDA-Public Use
  Company Number: PHHY2013VE117049

PATIENT
  Age: 33 Year
  Sex: Male

DRUGS (2)
  1. LEPONEX [Suspect]
     Indication: SCHIZOPHRENIA
     Dosage: 700 MG, DAILY
     Route: 048
     Dates: start: 19990101, end: 20130915
  2. LEPONEX [Suspect]
     Dosage: UNK
     Route: 048

REACTIONS (6)
  - Hallucination [Recovering/Resolving]
  - Aggression [Recovering/Resolving]
  - Decreased appetite [Recovering/Resolving]
  - Blood uric acid abnormal [Recovered/Resolved]
  - Insomnia [Recovering/Resolving]
  - Blood glucose abnormal [Recovered/Resolved]
